FAERS Safety Report 4310561-9 (Version None)
Quarter: 2004Q1

REPORT INFORMATION
  Report Type: 
  Country: None (occurrence: None)
  Receive Date: 20040303
  Receipt Date: 20040219
  Transmission Date: 20041129
  Serious: Yes (Other)
  Sender: FDA-Public Use
  Company Number: GR-GLAXOSMITHKLINE-B0323994A

PATIENT
  Age: 65 Year
  Sex: Female

DRUGS (3)
  1. TIMENTIN [Suspect]
     Indication: LARYNGECTOMY
     Dosage: 5.2G THREE TIMES PER DAY
     Route: 042
     Dates: start: 20040107, end: 20040112
  2. METRONIDAZOLE [Concomitant]
     Dosage: 500MG THREE TIMES PER DAY
     Route: 042
  3. ACETYLSALICYLIC [Concomitant]

REACTIONS (1)
  - GASTRIC HAEMORRHAGE [None]
